FAERS Safety Report 17824966 (Version 1)
Quarter: 2020Q2

REPORT INFORMATION
  Report Type: Spontaneous
  Country: US (occurrence: US)
  Receive Date: 20200526
  Receipt Date: 20200526
  Transmission Date: 20200714
  Serious: Yes (Life-Threatening, Other)
  Sender: FDA-Public Use
  Company Number: None

PATIENT
  Age: 79 Year
  Sex: Male
  Weight: 110 kg

DRUGS (17)
  1. REMDESIVIR. [Suspect]
     Active Substance: REMDESIVIR
     Indication: COVID-19
     Route: 042
  2. ASPIRIN 81 MG [Concomitant]
     Active Substance: ASPIRIN
     Dates: start: 20200507
  3. INSULIN INFUSION [Concomitant]
     Dates: start: 20200513
  4. FAMOTIDINE 20 MG PO [Concomitant]
     Dates: start: 20200507
  5. SIMVASTATIN 20 MG [Concomitant]
     Active Substance: SIMVASTATIN
     Dates: start: 20200506, end: 20200515
  6. ENOXAPARIN 40 MG SQ [Concomitant]
     Dates: start: 20200511, end: 20200520
  7. PROPOFOL INFUSION [Concomitant]
     Active Substance: PROPOFOL
     Dates: start: 20200513, end: 20200514
  8. AZITHROMYCIN ANHYDROUS. [Concomitant]
     Active Substance: AZITHROMYCIN ANHYDROUS
     Dates: start: 20200516, end: 20200520
  9. ALBUMIN 25 GM INFUSION [Concomitant]
     Dates: start: 20200517, end: 20200518
  10. CISATRACURIUM INFUSION [Concomitant]
     Dates: start: 20200516, end: 20200522
  11. CEFEPIME [Concomitant]
     Active Substance: CEFEPIME HYDROCHLORIDE
     Dates: start: 20200511, end: 20200517
  12. MIDAZOLAM INFUSION [Concomitant]
     Active Substance: MIDAZOLAM HYDROCHLORIDE
     Dates: start: 20200514
  13. VITAMIN D 2000 UNITS [Concomitant]
     Dates: start: 20200516
  14. FENTANYL CONTINUOUS INFUSION [Concomitant]
     Active Substance: FENTANYL
     Dates: start: 20200513
  15. FUROSEMIDE 40 MG IV [Concomitant]
     Dates: start: 20200515, end: 20200516
  16. MEROPENEM. [Concomitant]
     Active Substance: MEROPENEM
     Dates: start: 20200517
  17. TOCILIZUMAB. [Concomitant]
     Active Substance: TOCILIZUMAB
     Dates: start: 20200511, end: 20200511

REACTIONS (3)
  - Blood urea increased [None]
  - Blood creatinine increased [None]
  - Dialysis [None]

NARRATIVE: CASE EVENT DATE: 20200519
